FAERS Safety Report 6687467-3 (Version None)
Quarter: 2010Q2

REPORT INFORMATION
  Report Type: 
  Country: None (occurrence: None)
  Receive Date: 20100416
  Receipt Date: 20100416
  Transmission Date: 20101027
  Serious: Yes (Hospitalization)
  Sender: FDA-Public Use
  Company Number: None

PATIENT
  Age: 78 Year
  Sex: Male
  Weight: 67.8 kg

DRUGS (2)
  1. WARFARIN SODIUM [Suspect]
     Indication: ATRIAL FIBRILLATION
     Dosage: 4 MG OTHER PO
     Route: 048
     Dates: start: 19980814
  2. CLINDAMYCIN [Suspect]
     Indication: PAIN IN EXTREMITY
     Dosage: 150 MG TID PO
     Route: 048
     Dates: start: 20091203

REACTIONS (2)
  - HAEMATOMA [None]
  - HAEMORRHAGE [None]
